FAERS Safety Report 4443240-8 (Version None)
Quarter: 2004Q3

REPORT INFORMATION
  Report Type: 
  Country: None (occurrence: None)
  Receive Date: 20040903
  Receipt Date: 20040903
  Transmission Date: 20050211
  Serious: Yes (Other)
  Sender: FDA-Public Use
  Company Number: None

PATIENT
  Age: 20 Month
  Sex: Male
  Weight: 11.3399 kg

DRUGS (3)
  1. XOPENEX [Suspect]
     Indication: ASTHMA
     Dosage: 1.25  4 HOURS  RESPIRATORY
     Route: 055
     Dates: start: 20040830, end: 20040901
  2. XOPENEX [Suspect]
     Indication: NASOPHARYNGITIS
     Dosage: 1.25  4 HOURS  RESPIRATORY
     Route: 055
     Dates: start: 20040830, end: 20040901
  3. XOPENEX [Suspect]
     Indication: RESPIRATORY DISORDER
     Dosage: 1.25  4 HOURS  RESPIRATORY
     Route: 055
     Dates: start: 20040830, end: 20040901

REACTIONS (4)
  - CRYING [None]
  - DISORIENTATION [None]
  - PSYCHOTIC DISORDER [None]
  - SCREAMING [None]
